FAERS Safety Report 7272901-0 (Version None)
Quarter: 2011Q1

REPORT INFORMATION
  Report Type: 
  Country: None (occurrence: None)
  Receive Date: 20110203
  Receipt Date: 20110128
  Transmission Date: 20110831
  Serious: Yes (Other)
  Sender: FDA-Public Use
  Company Number: FR-ELI_LILLY_AND_COMPANY-FR201101007109

PATIENT
  Sex: Female

DRUGS (13)
  1. COAPROVEL [Concomitant]
     Dosage: 1 D/F, DAILY (1/D)
     Route: 048
  2. TAHOR [Concomitant]
     Dosage: 10 MG, DAILY (1/D)
     Route: 048
  3. STAGID [Concomitant]
     Dosage: 700 MG, 3/D
     Route: 048
  4. AMAREL [Concomitant]
     Dosage: 4 MG, DAILY (1/D)
     Dates: end: 20100218
  5. INIPOMP [Concomitant]
     Dosage: 20 MG, DAILY (1/D)
     Dates: end: 20100218
  6. ACTOS [Concomitant]
     Dosage: 45 MG, DAILY (1/D)
     Route: 048
  7. ABILIFY [Concomitant]
     Dosage: 5 MG, DAILY (1/D)
     Route: 048
  8. INSULIN [Concomitant]
     Dosage: UNK, UNK
     Dates: end: 20100218
  9. STILNOX [Concomitant]
     Dosage: 10 MG, DAILY (1/D)
     Route: 048
  10. BYETTA [Suspect]
     Indication: TYPE 2 DIABETES MELLITUS
     Dosage: 2 D/F, DAILY (1/D)
     Route: 058
     Dates: start: 20100218, end: 20100331
  11. DEROXAT [Concomitant]
     Dosage: 20 MG, DAILY (1/D)
     Route: 048
  12. DELURSAN [Concomitant]
     Dosage: 2500 MG, DAILY (1/D)
     Route: 048
  13. TOCO [Concomitant]
     Dosage: 1000 MG, DAILY (1/D)
     Route: 048

REACTIONS (2)
  - CYTOLYTIC HEPATITIS [None]
  - PANCREATITIS ACUTE [None]
